FAERS Safety Report 4652557-3 (Version None)
Quarter: 2005Q2

REPORT INFORMATION
  Report Type: 
  Country: None (occurrence: None)
  Receive Date: 20050502
  Receipt Date: 20050413
  Transmission Date: 20051028
  Serious: Yes (Other)
  Sender: FDA-Public Use
  Company Number: AT-2005-005617

PATIENT
  Age: 60 Year
  Sex: Male

DRUGS (1)
  1. FLUDARA [Suspect]
     Indication: LYMPHOMA
     Dosage: ORAL
     Route: 048

REACTIONS (1)
  - COAGULOPATHY [None]
